FAERS Safety Report 7578250-5 (Version None)
Quarter: 2011Q2

REPORT INFORMATION
  Report Type: 
  Country: None (occurrence: None)
  Receive Date: 20110628
  Receipt Date: 20110617
  Transmission Date: 20111010
  Serious: Yes (Other)
  Sender: FDA-Public Use
  Company Number: CA-US-EMD SERONO, INC.-7057554

PATIENT
  Sex: Female

DRUGS (7)
  1. VENTOLIN (VENTALIN) [Concomitant]
  2. FLOVIN [Concomitant]
  3. FLOVENT [Concomitant]
  4. IBUPROFEN [Concomitant]
  5. DERMATOP (DERMATAP) [Concomitant]
  6. REBIF [Suspect]
     Indication: RELAPSING-REMITTING MULTIPLE SCLEROSIS
     Dates: start: 20110426
  7. TYLENOL-500 [Concomitant]

REACTIONS (20)
  - NEPHROLITHIASIS [None]
  - OROPHARYNGEAL PAIN [None]
  - WHITE BLOOD CELL COUNT INCREASED [None]
  - INJECTION SITE HAEMATOMA [None]
  - CONTUSION [None]
  - FATIGUE [None]
  - ASTHENIA [None]
  - DECREASED APPETITE [None]
  - ABDOMINAL PAIN [None]
  - HEADACHE [None]
  - CONSTIPATION [None]
  - DIVERTICULITIS [None]
  - NAUSEA [None]
  - ABDOMINAL DISCOMFORT [None]
  - NASOPHARYNGITIS [None]
  - INJECTION SITE ERYTHEMA [None]
  - MALAISE [None]
  - RETCHING [None]
  - APHAGIA [None]
  - INFLUENZA LIKE ILLNESS [None]
